FAERS Safety Report 18059481 (Version 1)
Quarter: 2020Q3

REPORT INFORMATION
  Report Type: Spontaneous
  Country: US (occurrence: US)
  Receive Date: 20200723
  Receipt Date: 20200723
  Transmission Date: 20201103
  Serious: No
  Sender: FDA-Public Use
  Company Number: US-PFIZER INC-2020280672

PATIENT
  Age: 59 Year
  Sex: Female

DRUGS (1)
  1. XELJANZ [Suspect]
     Active Substance: TOFACITINIB CITRATE
     Indication: GASTROENTERITIS
     Dosage: 5 MG, 2X/DAY (60/BTL)
     Route: 048
     Dates: start: 20190823

REACTIONS (5)
  - Product use in unapproved indication [Unknown]
  - Muscle spasms [Unknown]
  - Pain [Unknown]
  - Product dose omission issue [Unknown]
  - Off label use [Unknown]
